FAERS Safety Report 8459044-5 (Version None)
Quarter: 2012Q2

REPORT INFORMATION
  Report Type: 
  Country: None (occurrence: None)
  Receive Date: 20120622
  Receipt Date: 20120618
  Transmission Date: 20120825
  Serious: Yes (Other)
  Sender: FDA-Public Use
  Company Number: US-PFIZER INC-2012071207

PATIENT
  Sex: Male

DRUGS (2)
  1. PHENYTOIN [Suspect]
     Dosage: UNK
  2. DILANTIN [Suspect]
     Dosage: UNK
     Route: 042

REACTIONS (2)
  - HAND AMPUTATION [None]
  - PURPLE GLOVE SYNDROME [None]
